FAERS Safety Report 10238729 (Version 2)
Quarter: 2014Q3

REPORT INFORMATION
  Report Type: Spontaneous
  Country: RU (occurrence: RU)
  Receive Date: 20140616
  Receipt Date: 20140821
  Transmission Date: 20150326
  Serious: Yes (Death, Hospitalization)
  Sender: FDA-Public Use
  Company Number: RU-NOVOPROD-413191

PATIENT
  Age: 87 Year
  Sex: Male

DRUGS (11)
  1. NOVOMIX 30 PENFILL [Suspect]
     Active Substance: INSULIN ASPART
     Dosage: 32 U, QD
     Route: 065
     Dates: start: 20140522
  2. AMIODARONE [Concomitant]
     Active Substance: AMIODARONE
     Indication: ATRIAL FIBRILLATION
  3. NOVOMIX 30 PENFILL [Suspect]
     Active Substance: INSULIN ASPART
     Dosage: UNK
     Route: 058
  4. AMLODIPINE [Concomitant]
     Active Substance: AMLODIPINE BESYLATE
     Indication: HYPERTENSION
     Dosage: 5 MG, QD
     Route: 048
  5. AMIODARONE [Concomitant]
     Active Substance: AMIODARONE
     Indication: MYOCARDIAL FIBROSIS
  6. ATORVASTATIN [Concomitant]
     Active Substance: ATORVASTATIN
     Indication: DYSLIPIDAEMIA
     Dosage: 20 MG, QD
     Route: 048
  7. AMIODARONE [Concomitant]
     Active Substance: AMIODARONE
     Indication: HYPERTENSION
     Dosage: 0.5 TAB, QD
     Route: 048
  8. CARDIOMAGNYL [Concomitant]
     Active Substance: ASPIRIN\MAGNESIUM HYDROXIDE
     Indication: CARDIOVASCULAR EVENT PROPHYLAXIS
     Dosage: 75 MG, QD
     Route: 048
  9. CITICOLINE [Concomitant]
     Active Substance: CITICOLINE
     Indication: CEREBRAL ARTERIOSCLEROSIS
     Dosage: 10 ML, QD
     Route: 048
  10. NOVOMIX 30 PENFILL [Suspect]
     Active Substance: INSULIN ASPART
     Indication: TYPE 2 DIABETES MELLITUS
     Dosage: 34 U, QD (20-0-14)
     Route: 058
     Dates: start: 2011, end: 20140510
  11. NOVOMIX 30 PENFILL [Suspect]
     Active Substance: INSULIN ASPART
     Dosage: 30 U, QD
     Route: 058
     Dates: start: 20140521

REACTIONS (4)
  - Diabetic ketoacidotic hyperglycaemic coma [Recovered/Resolved]
  - Blood glucose increased [Recovered/Resolved]
  - Dehydration [Fatal]
  - Drug dose omission [Unknown]

NARRATIVE: CASE EVENT DATE: 20140510
